FAERS Safety Report 6366300-3 (Version None)
Quarter: 2009Q3

REPORT INFORMATION
  Report Type: 
  Country: None (occurrence: None)
  Receive Date: 20090921
  Receipt Date: 20090821
  Transmission Date: 20100115
  Serious: No
  Sender: FDA-Public Use
  Company Number: US-BAYER-200930820NA

PATIENT
  Sex: Male

DRUGS (1)
  1. AVELOX [Suspect]
     Indication: DRUG USE FOR UNKNOWN INDICATION
     Dates: start: 20090701

REACTIONS (5)
  - BACK DISORDER [None]
  - BLEPHAROSPASM [None]
  - HYPOAESTHESIA [None]
  - PARAESTHESIA [None]
  - TENDONITIS [None]
